FAERS Safety Report 19242791 (Version 1)
Quarter: 2021Q2

REPORT INFORMATION
  Report Type: Spontaneous
  Country: FR (occurrence: FR)
  Receive Date: 20210511
  Receipt Date: 20210511
  Transmission Date: 20210717
  Serious: Yes (Hospitalization)
  Sender: FDA-Public Use
  Company Number: FR-TEVA-2021-FR-1908800

PATIENT
  Age: 61 Year
  Sex: Male
  Weight: 93 kg

DRUGS (5)
  1. ADENURIC [Concomitant]
     Active Substance: FEBUXOSTAT
  2. ATORVASTAT [Concomitant]
  3. ESCITALOPRAM [Suspect]
     Active Substance: ESCITALOPRAM OXALATE
     Indication: DEPRESSION
     Dosage: 10 MILLIGRAM DAILY;
     Route: 048
     Dates: start: 202103, end: 20210331
  4. TERALITHE [Interacting]
     Active Substance: LITHIUM CARBONATE
     Indication: BIPOLAR DISORDER
     Dosage: 1200 MILLIGRAM DAILY;
     Route: 048
     Dates: start: 1998, end: 20210331
  5. COAPROV [HYDROCHLOROTHIAZIDE\IRBESARTAN] [Interacting]
     Active Substance: HYDROCHLOROTHIAZIDE\IRBESARTAN
     Indication: HYPERTENSION
     Dosage: 1 DOSAGE FORMS DAILY; 1 TABLET OF 300/25 MG EVERY DAY
     Route: 048
     Dates: end: 20210401

REACTIONS (8)
  - Dysarthria [Recovered/Resolved]
  - Tremor [Recovered/Resolved]
  - Confusional state [Recovered/Resolved]
  - Balance disorder [Recovered/Resolved]
  - Antipsychotic drug level increased [Recovered/Resolved]
  - Amnesia [Recovered/Resolved]
  - Bradycardia [Recovered/Resolved]
  - Drug interaction [Unknown]

NARRATIVE: CASE EVENT DATE: 202103
